FAERS Safety Report 25192240 (Version 1)
Quarter: 2025Q2

REPORT INFORMATION
  Report Type: Spontaneous
  Country: US (occurrence: None)
  Receive Date: 20250414
  Receipt Date: 20250414
  Transmission Date: 20250717
  Serious: Yes (Other)
  Sender: FDA-CTU
  Company Number: None

PATIENT
  Age: 20 Year
  Sex: Female
  Weight: 56.25 kg

DRUGS (1)
  1. METRONIDAZOLE [Suspect]
     Active Substance: METRONIDAZOLE
     Indication: Bacterial vaginosis
     Dates: start: 20250122, end: 20250124

REACTIONS (6)
  - Neuropathy peripheral [None]
  - Hypophagia [None]
  - Headache [None]
  - Ear discomfort [None]
  - Sinus congestion [None]
  - Dizziness [None]

NARRATIVE: CASE EVENT DATE: 20250122
